FAERS Safety Report 5041877-9 (Version None)
Quarter: 2006Q2

REPORT INFORMATION
  Report Type: 
  Country: None (occurrence: None)
  Receive Date: 20060627
  Receipt Date: 20060612
  Transmission Date: 20061013
  Serious: Yes (Other)
  Sender: FDA-Public Use
  Company Number: 2006074503

PATIENT
  Age: 74 Year
  Sex: Female
  Weight: 65.318 kg

DRUGS (3)
  1. DETROL LA [Suspect]
     Indication: INCONTINENCE
     Dosage: 4 MG (4 MG, 1 IN 1 D), ORAL
     Route: 048
  2. MIACALCIN [Concomitant]
  3. EVISTA [Concomitant]

REACTIONS (8)
  - CARDIAC DISORDER [None]
  - DEPRESSION [None]
  - DRUG EFFECT DECREASED [None]
  - DRUG INEFFECTIVE [None]
  - DRY MOUTH [None]
  - PARKINSON'S DISEASE [None]
  - THERAPY REGIMEN CHANGED [None]
  - VENTRICULAR DYSFUNCTION [None]
